FAERS Safety Report 18225847 (Version 1)
Quarter: 2020Q3

REPORT INFORMATION
  Report Type: Spontaneous
  Country: US (occurrence: US)
  Receive Date: 20200903
  Receipt Date: 20200903
  Transmission Date: 20201103
  Serious: No
  Sender: FDA-Public Use
  Company Number: US-TEVA-2020-US-1817766

PATIENT
  Age: 20 Year
  Sex: Female

DRUGS (1)
  1. AUSTEDO [Suspect]
     Active Substance: DEUTETRABENAZINE
     Dosage: DAILY DOSE IS ONE TABLET (6 MG) IN THE MORNING AND TWO TABLETS (12MG) IN THE EVENING
     Route: 048
     Dates: start: 202006

REACTIONS (3)
  - Animal bite [Unknown]
  - Peripheral swelling [Unknown]
  - Skin discolouration [Unknown]

NARRATIVE: CASE EVENT DATE: 20200816
